FAERS Safety Report 4779613-3 (Version None)
Quarter: 2005Q3

REPORT INFORMATION
  Report Type: 
  Country: None (occurrence: None)
  Receive Date: 20050914
  Receipt Date: 20040819
  Transmission Date: 20060218
  Serious: Yes (Hospitalization)
  Sender: FDA-Public Use
  Company Number: 163-20785-04060610

PATIENT
  Age: 66 Year
  Sex: Male
  Weight: 103.5 kg

DRUGS (11)
  1. THALOMID [Suspect]
     Indication: CHRONIC LYMPHOCYTIC LEUKAEMIA
     Dosage: 200 MG, QD, ORAL
     Route: 048
     Dates: start: 20040601, end: 20040614
  2. THALOMID [Suspect]
     Indication: CHRONIC LYMPHOCYTIC LEUKAEMIA
     Dosage: 200 MG, QD, ORAL
     Route: 048
     Dates: start: 20040621, end: 20040813
  3. FLUDARABINE PHOSPHATE [Suspect]
     Indication: CHRONIC LYMPHOCYTIC LEUKAEMIA
     Dosage: 25 MG/M2, Q 28 DAYS, INTRAVENOUS
     Route: 042
     Dates: start: 20040601, end: 20040613
  4. FLUDARABINE PHOSPHATE [Suspect]
     Indication: CHRONIC LYMPHOCYTIC LEUKAEMIA
     Dosage: 25 MG/M2, Q 28 DAYS, INTRAVENOUS
     Route: 042
     Dates: start: 20040621, end: 20040806
  5. BACTRIM DS [Suspect]
     Dosage: 1 TAB, Q MON-WED-FRI, ORAL
     Route: 048
  6. COUMADIN [Concomitant]
  7. COMPAZINE [Concomitant]
  8. COLACE (DOCUSATE SODIUM) (TABLETS) [Concomitant]
  9. SENOKOT (SENNA FRUIT) (TABLETS) [Concomitant]
  10. NORVASC [Concomitant]
  11. ACYCLOVIR [Concomitant]

REACTIONS (9)
  - ANGINA PECTORIS [None]
  - CORONARY ARTERY DISEASE [None]
  - DEHYDRATION [None]
  - DYSPNOEA [None]
  - FEBRILE NEUTROPENIA [None]
  - NEUTROPENIA [None]
  - PYREXIA [None]
  - RASH [None]
  - TUMOUR LYSIS SYNDROME [None]
